FAERS Safety Report 11327350 (Version 1)
Quarter: 2015Q3

REPORT INFORMATION
  Report Type: Spontaneous
  Country: GB (occurrence: GB)
  Receive Date: 20150731
  Receipt Date: 20150731
  Transmission Date: 20151125
  Serious: Yes (Other)
  Sender: FDA-Public Use
  Company Number: GB-PFIZER INC-2015252890

PATIENT
  Age: 30 Year
  Sex: Female
  Weight: 50 kg

DRUGS (3)
  1. SAYANA [Suspect]
     Active Substance: MEDROXYPROGESTERONE
     Dosage: UNK
  2. COCODAMOL [Concomitant]
     Active Substance: ACETAMINOPHEN\CODEINE PHOSPHATE
     Dosage: UNK TAKE 1 OR 2 4 TIMES/DAY
     Dates: start: 20120921
  3. IBUPROFEN. [Concomitant]
     Active Substance: IBUPROFEN
     Dosage: 1 DF, 3X/DAY
     Dates: start: 20120921

REACTIONS (2)
  - Injection site atrophy [Not Recovered/Not Resolved]
  - Injection site mass [Not Recovered/Not Resolved]

NARRATIVE: CASE EVENT DATE: 20150306
